FAERS Safety Report 5717765-9 (Version None)
Quarter: 2008Q2

REPORT INFORMATION
  Report Type: 
  Country: None (occurrence: None)
  Receive Date: 20080425
  Receipt Date: 20080415
  Transmission Date: 20081010
  Serious: Yes (Hospitalization, Disabling)
  Sender: FDA-Public Use
  Company Number: US-AMGEN-US268725

PATIENT
  Sex: Male

DRUGS (12)
  1. ENBREL [Suspect]
     Indication: PSORIASIS
     Route: 058
     Dates: start: 20060416, end: 20080116
  2. ASCORBIC ACID [Concomitant]
     Route: 048
     Dates: start: 19960101
  3. CENTRUM SILVER [Concomitant]
     Route: 048
     Dates: start: 20030101
  4. ASPIRIN [Concomitant]
     Route: 048
     Dates: start: 20030101
  5. NAPROXEN [Concomitant]
     Route: 048
     Dates: start: 20030101
  6. TRICOR [Concomitant]
     Route: 048
     Dates: start: 20030101
  7. NORVASC [Concomitant]
     Route: 048
     Dates: start: 20030101
  8. ACCURETIC [Concomitant]
     Route: 048
     Dates: start: 19940101
  9. NIASPAN [Concomitant]
     Route: 048
     Dates: start: 20030101
  10. COREG [Concomitant]
     Route: 048
     Dates: start: 20050101
  11. AVELOX [Concomitant]
     Route: 048
     Dates: start: 20071012, end: 20071026
  12. NYQUIL [Concomitant]
     Route: 048
     Dates: start: 20071012, end: 20071019

REACTIONS (2)
  - PNEUMONIA [None]
  - SMALL CELL LUNG CANCER STAGE UNSPECIFIED [None]
